FAERS Safety Report 8169739-9 (Version None)
Quarter: 2012Q1

REPORT INFORMATION
  Report Type: 
  Country: None (occurrence: None)
  Receive Date: 20120228
  Receipt Date: 20120217
  Transmission Date: 20120608
  Serious: Yes (Other)
  Sender: FDA-Public Use
  Company Number: US-JNJFOC-20120210620

PATIENT
  Sex: Male
  Weight: 81.65 kg

DRUGS (7)
  1. ADVAIR DISKUS 100/50 [Concomitant]
     Indication: CHRONIC OBSTRUCTIVE PULMONARY DISEASE
     Dosage: DOSE:500/50 MG
     Route: 055
  2. ADVAIR DISKUS 100/50 [Concomitant]
     Indication: ASTHMA
     Dosage: DOSE:500/50 MG
     Route: 055
  3. REMICADE [Suspect]
     Indication: RHEUMATOID ARTHRITIS
     Route: 042
  4. DIOVAN [Concomitant]
     Indication: BLOOD PRESSURE
     Route: 048
  5. BYSTOLIC [Concomitant]
     Indication: BLOOD PRESSURE
     Route: 048
  6. METFORMIN HCL [Concomitant]
     Indication: DIABETES MELLITUS
     Route: 065
  7. REMICADE [Suspect]
     Route: 042
     Dates: start: 20120113

REACTIONS (3)
  - NEPHROLITHIASIS [None]
  - ORAL FUNGAL INFECTION [None]
  - RHINORRHOEA [None]
